FAERS Safety Report 5871985-1 (Version None)
Quarter: 2008Q3

REPORT INFORMATION
  Report Type: 
  Country: None (occurrence: None)
  Receive Date: 20080904
  Receipt Date: 20080904
  Transmission Date: 20090109
  Serious: Yes (Other)
  Sender: FDA-Public Use
  Company Number: None

PATIENT
  Age: 76 Year
  Sex: Male
  Weight: 84.369 kg

DRUGS (1)
  1. EFUDEX [Suspect]
     Indication: PRECANCEROUS SKIN LESION
     Dosage: TWO TUBES IN APPROX 3 1/2 DAYS TWICE DAILY OTIC
     Route: 001
     Dates: start: 20080702, end: 20080802

REACTIONS (6)
  - APPLICATION SITE IRRITATION [None]
  - RENAL DISORDER [None]
  - SCROTAL DISORDER [None]
  - SCROTAL ERYTHEMA [None]
  - SCROTAL PAIN [None]
  - THERMAL BURN [None]
